FAERS Safety Report 25880054 (Version 1)
Quarter: 2025Q4

REPORT INFORMATION
  Report Type: Spontaneous
  Country: EU (occurrence: EU)
  Receive Date: 20251004
  Receipt Date: 20251004
  Transmission Date: 20260118
  Serious: Yes (Hospitalization)
  Sender: ACCORD
  Company Number: None

PATIENT
  Age: 68 Year
  Sex: Male
  Weight: 82 kg

DRUGS (10)
  1. FUROSEMIDE [Suspect]
     Active Substance: FUROSEMIDE
     Indication: Hypertension
     Dosage: 1-0-0
     Dates: end: 20250702
  2. RAMIPRIL [Suspect]
     Active Substance: RAMIPRIL
     Indication: Hypertension
     Dosage: 2-0-1
     Dates: end: 20250702
  3. DIGOXIN [Concomitant]
     Active Substance: DIGOXIN
     Dosage: STRENGTH: 0.125 MG
  4. BISOPROLOL [Concomitant]
     Active Substance: BISOPROLOL
  5. AMIODARONE [Concomitant]
     Active Substance: AMIODARONE
  6. FLUINDIONE [Concomitant]
     Active Substance: FLUINDIONE
  7. FOLIC ACID [Concomitant]
     Active Substance: FOLIC ACID
  8. PAROXETINE [Concomitant]
     Active Substance: PAROXETINE
  9. FERROUS SULFATE [Concomitant]
     Active Substance: FERROUS SULFATE
     Dosage: STRENGTH: 80 MG
  10. CHOLECALCIFEROL [Concomitant]
     Active Substance: CHOLECALCIFEROL

REACTIONS (1)
  - Acute kidney injury [Recovered/Resolved]

NARRATIVE: CASE EVENT DATE: 20250702
